FAERS Safety Report 6223625-X (Version None)
Quarter: 2009Q2

REPORT INFORMATION
  Report Type: 
  Country: None (occurrence: None)
  Receive Date: 20090611
  Receipt Date: 20090317
  Transmission Date: 20091009
  Serious: No
  Sender: FDA-Public Use
  Company Number: US-ABBOTT-08P-163-0460258-00

PATIENT
  Sex: Male

DRUGS (2)
  1. HUMIRA [Suspect]
     Indication: DRUG EXPOSURE DURING PREGNANCY
     Route: 064
     Dates: start: 20080101, end: 20090223
  2. HUMIRA [Suspect]
     Route: 063
     Dates: start: 20090223

REACTIONS (3)
  - DRUG EXPOSURE DURING PREGNANCY [None]
  - DRUG EXPOSURE VIA BREAST MILK [None]
  - NORMAL NEWBORN [None]
